FAERS Safety Report 7535481-8 (Version None)
Quarter: 2011Q2

REPORT INFORMATION
  Report Type: 
  Country: None (occurrence: None)
  Receive Date: 20110609
  Receipt Date: 20110531
  Transmission Date: 20111010
  Serious: Yes (Life-Threatening)
  Sender: FDA-Public Use
  Company Number: JP-CELGENEUS-087-21660-11060643

PATIENT
  Age: 50 Year
  Sex: Female

DRUGS (1)
  1. ABRAXANE [Suspect]
     Indication: BREAST CANCER METASTATIC
     Dosage: 300 MILLIGRAM
     Route: 051
     Dates: start: 20110427, end: 20110527

REACTIONS (2)
  - RESPIRATORY DEPRESSION [None]
  - SOMNOLENCE [None]
